FAERS Safety Report 4362099-0 (Version None)
Quarter: 2004Q2

REPORT INFORMATION
  Report Type: 
  Country: None (occurrence: None)
  Receive Date: 20040517
  Receipt Date: 20040409
  Transmission Date: 20050107
  Serious: Yes (Death, Hospitalization)
  Sender: FDA-Public Use
  Company Number: A03200401117

PATIENT
  Age: 72 Year
  Sex: Male
  Weight: 96.6162 kg

DRUGS (10)
  1. PLAVIX [Suspect]
     Indication: STENT PLACEMENT
     Dosage: ORAL
     Route: 048
     Dates: start: 20040315
  2. TRISENOX [Suspect]
     Indication: MYELODYSPLASTIC SYNDROME
     Dosage: 30 MG OTHER - INTRAVENOUS NOS
     Route: 042
     Dates: start: 20040308, end: 20040312
  3. REOPRO [Suspect]
     Indication: STENT PLACEMENT
     Dates: start: 20040315
  4. CELECOXIB [Concomitant]
  5. CARVEDILOL [Concomitant]
  6. FLUOXETINE [Concomitant]
  7. LOSARTAN POTASSIUM + HYDROCHLOROTHIAZIDE [Concomitant]
  8. LEVOTHYROXINE SODIUM [Concomitant]
  9. ROSIGLITAZONE MALEATE [Concomitant]
  10. FUROSEMIDE [Concomitant]

REACTIONS (3)
  - PULMONARY HAEMORRHAGE [None]
  - RESPIRATORY FAILURE [None]
  - THROMBOCYTOPENIA [None]
